FAERS Safety Report 18939582 (Version 8)
Quarter: 2021Q3

REPORT INFORMATION
  Report Type: Report from Study
  Country: JP (occurrence: JP)
  Receive Date: 20210224
  Receipt Date: 20210727
  Transmission Date: 20211014
  Serious: Yes (Hospitalization, Other)
  Sender: FDA-Public Use
  Company Number: JP-BRISTOL-MYERS SQUIBB COMPANY-BMS-2021-016635

PATIENT
  Age: 61 Year
  Sex: Female
  Weight: 49.4 kg

DRUGS (15)
  1. MIROGABALIN [Concomitant]
     Active Substance: MIROGABALIN
     Indication: PERIPHERAL SENSORY NEUROPATHY
     Dosage: 5 MILLIGRAM, BID
     Route: 048
     Dates: start: 20200409, end: 20200712
  2. MIROGABALIN [Concomitant]
     Active Substance: MIROGABALIN
     Dosage: 10 MILLIGRAM, BID
     Route: 048
     Dates: start: 20200713
  3. NEOSTELIN GREEN [Concomitant]
     Active Substance: BENZETHONIUM CHLORIDE
     Indication: PRODUCT USED FOR UNKNOWN INDICATION
     Dosage: UNK
     Route: 050
     Dates: start: 20201015
  4. PLACEBO [Suspect]
     Active Substance: UNSPECIFIED INGREDIENT
     Indication: OVARIAN CANCER
     Dosage: 600 MILLIGRAM, BID
     Route: 048
     Dates: start: 20200629
  5. DEXAMETHASONE. [Concomitant]
     Active Substance: DEXAMETHASONE
     Indication: PRODUCT USED FOR UNKNOWN INDICATION
     Dosage: UNK
     Route: 061
     Dates: start: 20201015
  6. REBAMIPIDE [Concomitant]
     Active Substance: REBAMIPIDE
     Indication: GASTRITIS PROPHYLAXIS
     Dosage: 100 MILLIGRAM, BID
     Route: 048
     Dates: start: 20201201, end: 20201204
  7. RINDERON VG [Concomitant]
     Active Substance: BETAMETHASONE VALERATE\GENTAMICIN SULFATE
     Indication: PRODUCT USED FOR UNKNOWN INDICATION
     Dosage: 0.5 MILLIGRAM, BID
     Route: 048
     Dates: start: 20201201, end: 20201204
  8. GOSHAJINKIGAN [Concomitant]
     Active Substance: HERBALS
     Indication: PERIPHERAL SENSORY NEUROPATHY
     Dosage: 2.5 GRAM, TID
     Route: 048
     Dates: start: 201910
  9. EURAX [Concomitant]
     Active Substance: CROTAMITON
     Indication: GASTRITIS PROPHYLAXIS
     Dosage: UNK
     Route: 061
     Dates: start: 20200824
  10. RINDERON VG [Concomitant]
     Active Substance: BETAMETHASONE VALERATE\GENTAMICIN SULFATE
     Dosage: UNK
     Route: 061
     Dates: start: 20201201, end: 20201227
  11. NIVOLUMAB [Suspect]
     Active Substance: NIVOLUMAB
     Indication: OVARIAN CANCER
     Dosage: 480 MILLIGRAM, QMO
     Route: 042
     Dates: start: 20200729
  12. MECOBALAMIN [Concomitant]
     Active Substance: METHYLCOBALAMIN
     Indication: PERIPHERAL SENSORY NEUROPATHY
     Dosage: 500 MILLIGRAM, TID
     Route: 048
     Dates: start: 201910
  13. AZUNOL GARGLE LIQUID [Concomitant]
     Active Substance: SODIUM GUALENATE MONOHYDRATE
     Indication: STOMATITIS
     Dosage: UNK
     Route: 050
     Dates: start: 20200824
  14. LIXIANA [Concomitant]
     Active Substance: EDOXABAN TOSYLATE
     Indication: PRODUCT USED FOR UNKNOWN INDICATION
     Dosage: 30 MILLIGRAM, QD
     Route: 048
     Dates: start: 20200406
  15. BANAN [Concomitant]
     Active Substance: CEFPODOXIME PROXETIL
     Indication: PRODUCT USED FOR UNKNOWN INDICATION
     Dosage: 100 MILLIGRAM, BID
     Route: 048
     Dates: start: 20201201, end: 20201204

REACTIONS (3)
  - Non-cardiogenic pulmonary oedema [Recovered/Resolved]
  - Encephalitis [Not Recovered/Not Resolved]
  - Hypophysitis [Not Recovered/Not Resolved]

NARRATIVE: CASE EVENT DATE: 20210217
